FAERS Safety Report 6611506-9 (Version None)
Quarter: 2010Q1

REPORT INFORMATION
  Report Type: 
  Country: None (occurrence: None)
  Receive Date: 20100303
  Receipt Date: 20100218
  Transmission Date: 20100710
  Serious: Yes (Other)
  Sender: FDA-Public Use
  Company Number: PHHY2010GB06007

PATIENT
  Sex: Female

DRUGS (18)
  1. CLOZARIL [Suspect]
     Indication: SCHIZOPHRENIA
     Dosage: 400 MG DAILY
     Dates: start: 20090605
  2. CLOZARIL [Suspect]
     Dosage: UNK
  3. METHADONE [Concomitant]
     Indication: DRUG WITHDRAWAL SYNDROME
     Dosage: 40 MG , DAILY
     Route: 048
     Dates: start: 20090501
  4. METOCLOPRAMIDE HYDROCHLORIDE [Concomitant]
     Indication: NAUSEA
     Dosage: 15 MG, DAILY
     Route: 048
     Dates: start: 20090601
  5. OMEPRAZOLE [Concomitant]
     Indication: HYPERCHLORHYDRIA
     Dosage: 40 MG, DAILY
     Route: 048
     Dates: start: 20090601
  6. DOTHIEPIN HYDROCHLORIDE [Concomitant]
     Indication: DEPRESSION
     Dosage: 100 MG DAILY
     Route: 048
     Dates: start: 20090501
  7. FERROUS SULFATE TAB [Concomitant]
     Indication: IRON DEFICIENCY
     Dosage: 600 MG,DAILY
     Route: 048
     Dates: start: 20100101
  8. MOVICOL [Concomitant]
     Indication: CONSTIPATION
     Dosage: UNK
     Route: 048
     Dates: start: 20091201
  9. DIAZEPAM [Concomitant]
     Indication: CONVULSION
     Dosage: 10 MG, DAILY
     Route: 054
     Dates: start: 20090801
  10. GAVISCON [Concomitant]
     Indication: DYSPEPSIA
     Dosage: 40 ML, DAILY
     Dates: start: 20090701
  11. LORAZEPAM [Concomitant]
     Indication: AGITATION
     Dosage: UNK
     Route: 048
     Dates: start: 20090601
  12. PARACETAMOL [Concomitant]
     Indication: PAIN
     Dosage: 4 MG DAILY
     Dates: start: 20091201
  13. DICYCLOMINE [Concomitant]
     Indication: ABDOMINAL PAIN
     Dosage: 20 MG, UNK
     Route: 048
     Dates: start: 20091201
  14. BISACODYL [Concomitant]
     Indication: CONSTIPATION
     Dosage: 10 MG, DAILY
     Route: 048
     Dates: start: 20100201
  15. CLONAZEPAM [Concomitant]
     Indication: CONVULSION
     Dosage: 1 MG, DAILY
     Route: 048
     Dates: start: 20090801
  16. LAMOTRIGINE [Concomitant]
     Indication: CONVULSION
     Dosage: 250 MG
     Route: 048
     Dates: start: 20090901
  17. LACTULOSE [Concomitant]
     Indication: CONSTIPATION
     Dosage: 30 ML, UNK
     Dates: start: 20091201
  18. ORPHENADRINE CITRATE [Concomitant]
     Dosage: 50 MG, DAILY
     Route: 048
     Dates: start: 20090601

REACTIONS (6)
  - CONSTIPATION [None]
  - CONVULSION [None]
  - HEPATITIS C [None]
  - SALIVARY HYPERSECRETION [None]
  - SOMNOLENCE [None]
  - URINARY INCONTINENCE [None]
